FAERS Safety Report 25889306 (Version 2)
Quarter: 2025Q4

REPORT INFORMATION
  Report Type: Spontaneous
  Country: EU (occurrence: None)
  Receive Date: 20251007
  Receipt Date: 20251205
  Transmission Date: 20260118
  Serious: Yes (Other)
  Sender: UCB
  Company Number: EU-UCBSA-2025061740

PATIENT
  Age: 33 Year

DRUGS (1)
  1. BIMZELX [Suspect]
     Active Substance: BIMEKIZUMAB-BKZX
     Indication: Ankylosing spondylitis
     Dosage: UNK

REACTIONS (8)
  - Angioedema [Unknown]
  - Hypersensitivity [Unknown]
  - Food allergy [Unknown]
  - Pulpitis dental [Unknown]
  - Temperature intolerance [Unknown]
  - Allergy to metals [Unknown]
  - Seasonal allergy [Unknown]
  - Atopy [Unknown]
